FAERS Safety Report 9629702 (Version 3)
Quarter: 2013Q4

REPORT INFORMATION
  Report Type: Report from Study
  Country: US (occurrence: US)
  Receive Date: 20131017
  Receipt Date: 20131216
  Transmission Date: 20140711
  Serious: Yes (Other)
  Sender: FDA-Public Use
  Company Number: US-TEVA-438448USA

PATIENT
  Age: 19 Year
  Sex: Female

DRUGS (3)
  1. CLARAVIS [Suspect]
     Dosage: 40 MILLIGRAM DAILY; ON ODD DAYS
     Route: 048
     Dates: start: 20130724, end: 20130729
  2. CLARAVIS [Suspect]
     Dosage: 80 MILLIGRAM DAILY; ON EVEN DAYS
     Route: 048
     Dates: start: 20130729, end: 20130729
  3. BIRTH CONTROL PILLS [Concomitant]

REACTIONS (1)
  - Unintended pregnancy [Unknown]
